FAERS Safety Report 25142603 (Version 2)
Quarter: 2025Q2

REPORT INFORMATION
  Report Type: Spontaneous
  Country: FR (occurrence: FR)
  Receive Date: 20250331
  Receipt Date: 20250605
  Transmission Date: 20250716
  Serious: Yes (Death, Hospitalization, Other)
  Sender: APELLIS PHARMACEUTICALS
  Company Number: FR-BIOVITRUM-2025-FR-003829

PATIENT

DRUGS (1)
  1. PEGCETACOPLAN [Suspect]
     Active Substance: PEGCETACOPLAN
     Indication: Paroxysmal nocturnal haemoglobinuria
     Route: 058

REACTIONS (2)
  - Cardiac valve disease [Fatal]
  - Product availability issue [Unknown]
